FAERS Safety Report 7316632 (Version 2)
Quarter: 2012Q4

REPORT INFORMATION
  Report Type: 
  Country: US (occurrence: US)
  Receive Date: 20100311
  Receipt Date: 20121010
  Transmission Date: 20130627
  Serious: No
  Sender: FDA-Public Use
  Company Number: US-BIOGENIDEC-2009BI021184

PATIENT
  Sex: Female

DRUGS (1)
  1. AVONEX [Suspect]
     Indication: MULTIPLE SCLEROSIS
     Route: 030
     Dates: start: 20090320, end: 20091016

REACTIONS (5)
  - Memory impairment [Unknown]
  - Depressed mood [Unknown]
  - Injection site erythema [Unknown]
  - Injection site pain [Unknown]
  - Amnesia [Not Recovered/Not Resolved]
